FAERS Safety Report 7299849 (Version 5)
Quarter: 2013Q4

REPORT INFORMATION
  Report Type: Spontaneous
  Country: US (occurrence: US)
  Receive Date: 20100301
  Receipt Date: 20131205
  Transmission Date: 20140711
  Serious: Yes (Other)
  Sender: FDA-Public Use
  Company Number: US-BAYER-201014976NA

PATIENT
  Age: 24 Year
  Sex: Female
  Weight: 57 kg

DRUGS (12)
  1. YAZ [Suspect]
     Dosage: AS USED DOSE: UNK
     Route: 048
     Dates: start: 200706, end: 20090315
  2. OCELLA [Suspect]
     Dosage: UNK UNK, QD
     Route: 048
     Dates: start: 2007, end: 20090615
  3. EXCEDRIN [CAFFEINE,PARACETAMOL] [Concomitant]
     Route: 065
  4. NSAID^S [Concomitant]
     Route: 065
  5. TORADOL [Concomitant]
     Indication: BILIARY COLIC
     Route: 065
  6. NUBAIN [Concomitant]
  7. VICODIN [Concomitant]
     Indication: BILIARY COLIC
  8. DICYCLOMINE [Concomitant]
  9. MUPIROCIN [Concomitant]
  10. OXYCODONE [Concomitant]
  11. SMZ-TMP DS [Concomitant]
  12. BACTRIM [Concomitant]

REACTIONS (8)
  - Cholelithiasis [Unknown]
  - Cholecystitis chronic [None]
  - Abdominal pain upper [Unknown]
  - Abdominal pain upper [Not Recovered/Not Resolved]
  - Dyspepsia [Unknown]
  - Nausea [Unknown]
  - Gastrooesophageal reflux disease [None]
  - Weight decreased [None]
